FAERS Safety Report 6578769-X (Version None)
Quarter: 2010Q1

REPORT INFORMATION
  Report Type: 
  Country: None (occurrence: None)
  Receive Date: 20100202
  Receipt Date: 20100122
  Transmission Date: 20100710
  Serious: Yes (Death)
  Sender: FDA-Public Use
  Company Number: 2009AP001543

PATIENT
  Age: 79 Year
  Sex: Male

DRUGS (9)
  1. ALENDRONATE SODIUM [Suspect]
     Dosage: 70 MG, QW, PO
     Route: 048
     Dates: start: 20081114
  2. OMEPRAZOLE [Suspect]
     Dosage: PO
     Route: 048
     Dates: start: 20081114
  3. ACETYLCYSTEINE [Suspect]
     Indication: IDIOPATHIC PULMONARY FIBROSIS
     Dosage: 600 MG, PO, TID
     Route: 048
     Dates: start: 20081114, end: 20081226
  4. AZATHIOPRINE [Suspect]
     Indication: IDIOPATHIC PULMONARY FIBROSIS
     Dosage: 125 MG, PO, QD
     Route: 048
     Dates: start: 20081114, end: 20081226
  5. PREDNISOLONE [Suspect]
  6. WARFARIN SODIUM [Concomitant]
  7. ATORVASTATIN CALCIUM [Concomitant]
  8. CANDESARTAN CILEXETIL [Concomitant]
  9. AMIODARONE HCL [Concomitant]

REACTIONS (4)
  - ERYTHEMA [None]
  - NEUTROPENIA [None]
  - SEPSIS [None]
  - TOXIC EPIDERMAL NECROLYSIS [None]
